FAERS Safety Report 6469509-3 (Version None)
Quarter: 2009Q4

REPORT INFORMATION
  Report Type: 
  Country: None (occurrence: None)
  Receive Date: 20091203
  Receipt Date: 20091126
  Transmission Date: 20100525
  Serious: Yes (Hospitalization, Other)
  Sender: FDA-Public Use
  Company Number: JP-PFIZER INC-2009304244

PATIENT
  Age: 81 Year
  Sex: Female

DRUGS (1)
  1. ATARAX [Suspect]
     Indication: ANAESTHETIC PREMEDICATION
     Dosage: 25 MG, DAILY
     Route: 030
     Dates: start: 20091013, end: 20091013

REACTIONS (1)
  - INTERSTITIAL LUNG DISEASE [None]
